FAERS Safety Report 4558608-9 (Version None)
Quarter: 2005Q1

REPORT INFORMATION
  Report Type: 
  Country: None (occurrence: None)
  Receive Date: 20050121
  Receipt Date: 20050118
  Transmission Date: 20050727
  Serious: Yes (Other)
  Sender: FDA-Public Use
  Company Number: NO-ROCHE-392739

PATIENT
  Age: 12 Year
  Sex: Male
  Weight: 44 kg

DRUGS (7)
  1. TORADOL [Suspect]
     Route: 042
     Dates: start: 20041013, end: 20041013
  2. PROPOFOL [Concomitant]
     Indication: ANAESTHESIA
     Dosage: DOSE REPORTED AS CUMULATIVE: 380 MG.
     Route: 042
     Dates: start: 20041013, end: 20041013
  3. DEXAMETHASONE [Concomitant]
     Dosage: DOSE REPORTED AS CUMULATIVE: 8 MG.
     Route: 042
     Dates: start: 20041013, end: 20041013
  4. XYLOCAINE [Concomitant]
     Indication: INJECTION SITE ANAESTHESIA
     Dosage: DOSE REPORTED AS CUMULATIVE: 120 MG.
     Dates: start: 20041013, end: 20041013
  5. ATROPINE [Concomitant]
     Indication: ANAESTHESIA
     Route: 042
     Dates: start: 20041013, end: 20041013
  6. ULTIVA [Concomitant]
     Indication: ANAESTHESIA
     Dosage: DOSE REPORTED AS CUMULATIVE: 1110 MG.
     Route: 042
     Dates: start: 20041013, end: 20041013
  7. PINEX [Concomitant]
     Dosage: DOSE REPORTED AS CUMULATIVE: 1000 MG.
     Route: 048
     Dates: start: 20041013, end: 20041013

REACTIONS (1)
  - PYELONEPHRITIS [None]
